FAERS Safety Report 7263085-3 (Version None)
Quarter: 2011Q1

REPORT INFORMATION
  Report Type: 
  Country: None (occurrence: None)
  Receive Date: 20110130
  Receipt Date: 20101004
  Transmission Date: 20110831
  Serious: No
  Sender: FDA-Public Use
  Company Number: US-ABBOTT-10P-163-0675596-00

PATIENT
  Age: 51 Year
  Sex: Male

DRUGS (6)
  1. HUMIRA [Suspect]
     Indication: CROHN'S DISEASE
     Dosage: 160MG LOADING DOSE DAY 1
     Route: 058
     Dates: start: 20100901, end: 20100901
  2. TRAMADOL HCL [Concomitant]
     Indication: PAIN
  3. HUMIRA [Suspect]
     Dosage: 80MG LOADING DOSE DAY 15
  4. HUMIRA [Suspect]
  5. PREDNISONE [Concomitant]
     Indication: PRODUCT USED FOR UNKNOWN INDICATION
     Dosage: TAPERING DOSE CURRENTLY ON 21/2MG DAILY
  6. HUMIRA [Suspect]
     Dosage: 40MG DAY 29

REACTIONS (1)
  - ABDOMINAL ABSCESS [None]
